FAERS Safety Report 17659394 (Version 1)
Quarter: 2020Q2

REPORT INFORMATION
  Report Type: Spontaneous
  Country: US (occurrence: US)
  Receive Date: 20200413
  Receipt Date: 20200413
  Transmission Date: 20200713
  Serious: No
  Sender: FDA-Public Use
  Company Number: US-BION-007888

PATIENT
  Age: 71 Year
  Sex: Female
  Weight: 53.52 kg

DRUGS (1)
  1. ALEVE [Suspect]
     Active Substance: NAPROXEN SODIUM
     Indication: SINUSITIS
     Dosage: LOT NO: NAA6F97-3 ?1 LIQUID GEL
     Route: 048
     Dates: start: 20190316

REACTIONS (2)
  - Drug effective for unapproved indication [Not Recovered/Not Resolved]
  - Product prescribing error [Not Recovered/Not Resolved]

NARRATIVE: CASE EVENT DATE: 20190317
